FAERS Safety Report 24002011 (Version 2)
Quarter: 2024Q2

REPORT INFORMATION
  Report Type: Report from Study
  Country: TW (occurrence: TW)
  Receive Date: 20240622
  Receipt Date: 20240629
  Transmission Date: 20240716
  Serious: Yes (Hospitalization)
  Sender: FDA-Public Use
  Company Number: TW-ABBVIE-5809198

PATIENT
  Age: 61 Year
  Sex: Female
  Weight: 53 kg

DRUGS (3)
  1. HUMIRA [Suspect]
     Active Substance: ADALIMUMAB
     Indication: Colitis ulcerative
     Dosage: 2 UNITS EVERY DAY WITH MEAL.
     Route: 058
     Dates: start: 20240529, end: 20240612
  2. HUMIRA [Suspect]
     Active Substance: ADALIMUMAB
     Dosage: 1 DOSE Q2W FOR 28 DAYS
     Route: 058
     Dates: start: 20240626
  3. MESALAMINE [Concomitant]
     Active Substance: MESALAMINE
     Indication: Colitis ulcerative
     Dosage: 2 UNITS ONCE DAILY WITH MEAL
     Route: 048
     Dates: start: 20220711

REACTIONS (6)
  - Immune-mediated cholangitis [Unknown]
  - Biliary obstruction [Unknown]
  - Headache [Unknown]
  - Nausea [Unknown]
  - Yellow skin [Unknown]
  - Chromaturia [Unknown]

NARRATIVE: CASE EVENT DATE: 20240618
